FAERS Safety Report 12080063 (Version 1)
Quarter: 2016Q1

REPORT INFORMATION
  Report Type: Report from Study
  Country: ES (occurrence: CO)
  Receive Date: 20160216
  Receipt Date: 20160216
  Transmission Date: 20160526
  Serious: Yes (Other)
  Sender: FDA-Public Use
  Company Number: ES-PFM-CO-2015-3923

PATIENT
  Sex: Female

DRUGS (18)
  1. METICORTEN [Concomitant]
     Active Substance: PREDNISONE
     Indication: PREMEDICATION
     Dosage: UNK
     Route: 065
     Dates: start: 20041015, end: 20041031
  2. TEGRETOL [Concomitant]
     Active Substance: CARBAMAZEPINE
     Indication: NEURALGIA
     Dosage: UNK
     Route: 065
     Dates: start: 20041028, end: 20041129
  3. FIRAC PLUS [Concomitant]
     Indication: PAIN
     Dosage: UNK
     Route: 065
     Dates: start: 20041129, end: 20041129
  4. CIPROFLOXACIN. [Concomitant]
     Active Substance: CIPROFLOXACIN
     Indication: RESPIRATORY DISORDER
     Dosage: UNK
     Route: 065
     Dates: start: 20041031, end: 20041110
  5. TYLEX [Concomitant]
     Active Substance: ACETAMINOPHEN\CODEINE PHOSPHATE
     Indication: PAIN
     Dosage: UNK
     Route: 065
     Dates: start: 20041104, end: 20041104
  6. CARBAMAZEPIRES [Concomitant]
     Active Substance: CARBAMAZEPINE
     Indication: ANTIDEPRESSANT THERAPY
     Dosage: UNK
     Route: 065
     Dates: start: 20041015, end: 20041029
  7. TRAMADOL. [Concomitant]
     Active Substance: TRAMADOL
     Indication: PAIN
     Dosage: UNK
     Route: 065
     Dates: start: 20041029, end: 20041029
  8. NAVELBINE [Suspect]
     Active Substance: VINORELBINE TARTRATE
     Indication: BREAST CANCER
     Dosage: 94.4 MG, CYCLICAL (1/21), (47.4 MG ON DAY 0 AND 47 MG ON DAY 8)
     Route: 042
     Dates: start: 20041008
  9. RANITIDINE [Concomitant]
     Active Substance: RANITIDINE\RANITIDINE HYDROCHLORIDE
     Indication: ABDOMINAL PAIN UPPER
     Dosage: UNK
     Route: 065
     Dates: start: 20041024, end: 20041024
  10. VENLOT [Suspect]
     Active Substance: UNSPECIFIED INGREDIENT
  11. NAVELBINE [Suspect]
     Active Substance: VINORELBINE TARTRATE
     Dosage: 94 MG, CYCLICAL (1/21) (47 MG ON DAY 0 AND DAY 8)
     Route: 042
     Dates: start: 20041028
  12. VOLTAREN [Concomitant]
     Active Substance: DICLOFENAC SODIUM
     Indication: INFLAMMATION
     Dosage: UNK
     Route: 065
     Dates: start: 20041129, end: 20041221
  13. BUSCAPINA [Concomitant]
     Active Substance: BUTYLSCOPOLAMINE BROMIDE
     Indication: CONSTIPATION
     Dosage: UNK
     Route: 065
     Dates: start: 20041130, end: 20041130
  14. TRILEPTAL [Concomitant]
     Active Substance: OXCARBAZEPINE
     Indication: EPILEPSY
     Dosage: UNK
     Route: 065
     Dates: start: 20041130, end: 20041221
  15. BACTRIM [Concomitant]
     Active Substance: SULFAMETHOXAZOLE\TRIMETHOPRIM
     Indication: CONSTIPATION
     Dosage: UNK
     Route: 065
     Dates: start: 20041214, end: 20041220
  16. OMEPRAZOL [Concomitant]
     Active Substance: OMEPRAZOLE
     Indication: ABDOMINAL PAIN UPPER
     Dosage: UNK
     Route: 065
     Dates: start: 20041015, end: 20041221
  17. NAVELBINE [Suspect]
     Active Substance: VINORELBINE TARTRATE
     Dosage: 70 MG, CYCLICAL (1/21) (35 MG ON DAY 0 AND DAY 8)
     Route: 042
     Dates: start: 20041123
  18. ACETAMINOPHEN. [Concomitant]
     Active Substance: ACETAMINOPHEN
     Indication: PAIN
     Dosage: UNK
     Route: 065
     Dates: start: 20041015, end: 20041015

REACTIONS (16)
  - Dyspnoea [Unknown]
  - Abdominal pain [Unknown]
  - Vomiting [Unknown]
  - Hypersensitivity [Unknown]
  - Thrombocytopenia [Unknown]
  - Lymphopenia [Unknown]
  - Hypoalbuminaemia [Unknown]
  - Constipation [Unknown]
  - Malignant neoplasm progression [Unknown]
  - Pruritus [Unknown]
  - Nausea [Unknown]
  - Leukopenia [Unknown]
  - Haematotoxicity [Unknown]
  - Haematuria [Unknown]
  - Fatigue [Unknown]
  - Neutropenia [Unknown]
